FAERS Safety Report 9769560 (Version 1)
Quarter: 2013Q4

REPORT INFORMATION
  Report Type: Spontaneous
  Country: US (occurrence: None)
  Receive Date: 20131217
  Receipt Date: 20131217
  Transmission Date: 20140711
  Serious: Yes (Other)
  Sender: FDA-Public Use
  Company Number: None

PATIENT
  Age: 49 Year
  Sex: Female
  Weight: 99.5 kg

DRUGS (6)
  1. TAMOXIFEN [Suspect]
     Dates: start: 200904, end: 20130107
  2. CALCIUM + VITAMIN D [Concomitant]
  3. CRESTOR [Concomitant]
  4. FERROUS SULFATE [Concomitant]
  5. MULTIVITAMIN [Concomitant]
  6. VENTOILIN [Concomitant]

REACTIONS (3)
  - Local swelling [None]
  - Pain in extremity [None]
  - Deep vein thrombosis [None]
